FAERS Safety Report 4385900-3 (Version None)
Quarter: 2004Q2

REPORT INFORMATION
  Report Type: 
  Country: None (occurrence: None)
  Receive Date: 20040628
  Receipt Date: 20040614
  Transmission Date: 20050107
  Serious: Yes (Hospitalization)
  Sender: FDA-Public Use
  Company Number: FR-GLAXOSMITHKLINE-B0336030A

PATIENT
  Age: 14 Year
  Sex: Female

DRUGS (2)
  1. LAMICTAL [Suspect]
     Indication: EPILEPSY
     Dosage: 25MG PER DAY
     Route: 048
     Dates: start: 20040511, end: 20040523
  2. DEPAKENE [Suspect]
     Indication: EPILEPSY
     Dosage: 500MG TWICE PER DAY
     Route: 048

REACTIONS (15)
  - ANAL ULCER [None]
  - ASTHENIA [None]
  - ATROPHY OF TONGUE PAPILLAE [None]
  - BURNING SENSATION [None]
  - CHEILITIS [None]
  - CONJUNCTIVITIS [None]
  - COUGH [None]
  - DRUG INTERACTION [None]
  - ERYTHEMA [None]
  - FACE OEDEMA [None]
  - HEPATIC ENZYME INCREASED [None]
  - LYMPHADENOPATHY [None]
  - PYREXIA [None]
  - RASH MACULAR [None]
  - SKIN DESQUAMATION [None]
